FAERS Safety Report 9114225 (Version 1)
Quarter: 2013Q1

REPORT INFORMATION
  Report Type: Spontaneous
  Country: US (occurrence: US)
  Receive Date: 20130208
  Receipt Date: 20130208
  Transmission Date: 20140127
  Serious: Yes (Death)
  Sender: FDA-Public Use
  Company Number: CHPA2013US002547

PATIENT
  Age: 68 Year
  Sex: Female

DRUGS (5)
  1. DIPHENHYDRAMINE [Suspect]
     Dosage: UNK, UNK
     Route: 048
  2. CODEINE [Suspect]
     Dosage: UNK, UNK
     Route: 048
  3. MUSCLE RELAXANTS [Suspect]
     Dosage: UNK, UNK
     Route: 048
  4. PHENOBARBITAL [Suspect]
     Dosage: UNK, UNK
     Route: 048
  5. TEMAZEPAM [Suspect]
     Dosage: UNK, UNK
     Route: 048

REACTIONS (1)
  - Drug abuse [Fatal]
